FAERS Safety Report 24202466 (Version 1)
Quarter: 2024Q3

REPORT INFORMATION
  Report Type: Spontaneous
  Country: FR (occurrence: FR)
  Receive Date: 20240813
  Receipt Date: 20240813
  Transmission Date: 20241016
  Serious: Yes (Hospitalization)
  Sender: CHEPLAPHARM
  Company Number: None

PATIENT
  Age: 54 Year
  Sex: Male
  Weight: 79 kg

DRUGS (13)
  1. OLANZAPINE [Interacting]
     Active Substance: OLANZAPINE
     Indication: Bipolar disorder
     Dosage: 5 MG X 2 / DAY?DAILY DOSE: 10 MILLIGRAM
     Route: 048
  2. TERALITHE [Interacting]
     Active Substance: LITHIUM CARBONATE
     Indication: Bipolar disorder
     Dosage: 2 CP / DAY. TABLET SCORED. 1 TABLET AT 8AM AND 1 TABLET AT 6PM ?DAILY DOSE: 500 MILLIGRAM
     Route: 048
     Dates: start: 202309
  3. CLOMIPRAMINE [Interacting]
     Active Substance: CLOMIPRAMINE
     Indication: Bipolar disorder
     Dosage: 75 MG - 0 -75 MG?DAILY DOSE: 150 MILLIGRAM
     Route: 048
     Dates: start: 20240711, end: 20240718
  4. CLOMIPRAMINE [Interacting]
     Active Substance: CLOMIPRAMINE
     Indication: Bipolar disorder
     Dosage: 37,5 MG - 0 -37,5 MG. HALVING OF DOSES ?DAILY DOSE: 75 MILLIGRAM
     Route: 048
     Dates: start: 20240718, end: 20240721
  5. CLOMIPRAMINE [Interacting]
     Active Substance: CLOMIPRAMINE
     Indication: Bipolar disorder
     Dosage: RESUMPTION OF FULL-DOSE CLOMIPRAMINE 75 MG - 25 MG - 75 MG?DAILY DOSE: 175 MILLIGRAM
     Route: 048
     Dates: start: 20240721
  6. CLOMIPRAMINE [Interacting]
     Active Substance: CLOMIPRAMINE
     Indication: Bipolar disorder
     Dosage: 75 MG - 75 MG -75 MG?DAILY DOSE: 225 MILLIGRAM
     Route: 048
     Dates: end: 20240711
  7. OXAZEPAM [Concomitant]
     Active Substance: OXAZEPAM
     Dosage: HALVING OF DOSES
     Dates: start: 20240718
  8. OXAZEPAM [Concomitant]
     Active Substance: OXAZEPAM
  9. ZOPICLONE [Concomitant]
     Active Substance: ZOPICLONE
     Dosage: HALVING OF DOSES
     Dates: end: 20240718
  10. ZOPICLONE [Concomitant]
     Active Substance: ZOPICLONE
  11. LOVENOX [Concomitant]
     Active Substance: ENOXAPARIN SODIUM
  12. AMLODIPINE [Concomitant]
     Active Substance: AMLODIPINE BESYLATE
  13. RAMIPRIL [Concomitant]
     Active Substance: RAMIPRIL

REACTIONS (5)
  - Extrapyramidal disorder [Recovered/Resolved]
  - Catatonia [Unknown]
  - Disorientation [Unknown]
  - Acute kidney injury [Unknown]
  - Overdose [Unknown]

NARRATIVE: CASE EVENT DATE: 20240705
